FAERS Safety Report 6307879-7 (Version None)
Quarter: 2009Q3

REPORT INFORMATION
  Report Type: 
  Country: None (occurrence: None)
  Receive Date: 20090813
  Receipt Date: 20090806
  Transmission Date: 20100115
  Serious: Yes (Other)
  Sender: FDA-Public Use
  Company Number: US-BAYER-200912804BCC

PATIENT
  Age: 63 Year
  Sex: Female

DRUGS (1)
  1. ALEVE [Suspect]
     Indication: MUSCULOSKELETAL PAIN
     Route: 048
     Dates: start: 20090805

REACTIONS (6)
  - ERYTHEMA [None]
  - FATIGUE [None]
  - LIP SWELLING [None]
  - RASH [None]
  - SWELLING FACE [None]
  - URTICARIA [None]
